FAERS Safety Report 9158223 (Version 1)
Quarter: 2013Q1

REPORT INFORMATION
  Report Type: Report from Study
  Country: DE (occurrence: DE)
  Receive Date: 20130312
  Receipt Date: 20130312
  Transmission Date: 20140127
  Serious: Yes (Hospitalization)
  Sender: FDA-Public Use
  Company Number: DE-ROCHE-1199849

PATIENT
  Age: 75 Year
  Sex: Female
  Weight: 47.5 kg

DRUGS (2)
  1. TRASTUZUMAB [Suspect]
     Indication: GASTRIC CANCER
     Route: 042
     Dates: start: 20121206
  2. IRINOTECAN [Suspect]
     Indication: GASTRIC CANCER
     Route: 042
     Dates: start: 20121206

REACTIONS (1)
  - General physical health deterioration [Not Recovered/Not Resolved]
